FAERS Safety Report 6355126-2 (Version None)
Quarter: 2009Q3

REPORT INFORMATION
  Report Type: 
  Country: None (occurrence: None)
  Receive Date: 20090914
  Receipt Date: 20090831
  Transmission Date: 20100115
  Serious: Yes (Other)
  Sender: FDA-Public Use
  Company Number: IT-MYLANLABS-2009S1015412

PATIENT
  Age: 81 Year
  Sex: Female
  Weight: 62 kg

DRUGS (2)
  1. NADROPARIN CALCIUM [Interacting]
     Indication: ACUTE MYOCARDIAL INFARCTION
     Dosage: 6000IU EVERY 12 HOURS
     Route: 058
  2. TICLOPIDINE HCL [Suspect]
     Indication: ACUTE MYOCARDIAL INFARCTION
     Dosage: 250MG EVERY 12 HOURS

REACTIONS (2)
  - DRUG INTERACTION [None]
  - HAEMATOMA [None]
